FAERS Safety Report 9742417 (Version 3)
Quarter: 2016Q1

REPORT INFORMATION
  Report Type: Spontaneous
  Country: US (occurrence: US)
  Receive Date: 20131210
  Receipt Date: 20160108
  Transmission Date: 20160526
  Serious: Yes (Hospitalization, Disabling, Other)
  Sender: FDA-Public Use
  Company Number: US-MERCK-1312USA001409

PATIENT
  Sex: Female

DRUGS (2)
  1. FOSAMAX [Suspect]
     Active Substance: ALENDRONATE SODIUM
     Indication: OSTEOPOROSIS
     Dosage: 70 MG, UNK
     Route: 048
     Dates: start: 200301, end: 20111027
  2. FOSAMAX PLUS D [Suspect]
     Active Substance: ALENDRONATE SODIUM\CHOLECALCIFEROL
     Indication: OSTEOPOROSIS
     Dosage: 70 MG, UNK
     Route: 048
     Dates: start: 200701, end: 201110

REACTIONS (34)
  - Wrist fracture [Unknown]
  - Thyroidectomy [Unknown]
  - Femur fracture [Unknown]
  - Atelectasis [Unknown]
  - Musculoskeletal stiffness [Unknown]
  - Breast cancer [Unknown]
  - Post-traumatic headache [Unknown]
  - Pleural effusion [Unknown]
  - Pain in extremity [Unknown]
  - Femur fracture [Recovered/Resolved]
  - Nausea [Unknown]
  - Low turnover osteopathy [Unknown]
  - Haematoma [Unknown]
  - Dyspnoea [Unknown]
  - Bone lesion [Unknown]
  - Uterine dilation and curettage [Unknown]
  - Foot operation [Unknown]
  - Modified radical mastectomy [Unknown]
  - Granuloma [Unknown]
  - Cardiomegaly [Unknown]
  - Post procedural hypothyroidism [Unknown]
  - Osteoarthritis [Unknown]
  - Chest pain [Unknown]
  - Subdural haematoma [Unknown]
  - Osteoarthritis [Unknown]
  - Contusion [Unknown]
  - Chest wall operation [Unknown]
  - Swelling [Unknown]
  - Fibrin D dimer [Unknown]
  - Open angle glaucoma [Unknown]
  - Musculoskeletal discomfort [Unknown]
  - Osteoporosis [Unknown]
  - Contusion [Unknown]
  - Aortic arteriosclerosis [Unknown]

NARRATIVE: CASE EVENT DATE: 2004
